FAERS Safety Report 4822959-0 (Version None)
Quarter: 2005Q4

REPORT INFORMATION
  Report Type: 
  Country: None (occurrence: None)
  Receive Date: 20051108
  Receipt Date: 20050928
  Transmission Date: 20060501
  Serious: Yes (Hospitalization)
  Sender: FDA-Public Use
  Company Number: HQWYE735529SEP05

PATIENT
  Sex: Female

DRUGS (9)
  1. ENBREL [Suspect]
     Indication: RHEUMATOID ARTHRITIS
     Route: 058
     Dates: start: 20050824, end: 20051011
  2. SOLETON [Concomitant]
     Route: 065
  3. MECOBALAMIN [Concomitant]
     Route: 065
  4. PREDNISOLONE [Concomitant]
     Route: 065
  5. RANITIDINE HYDROCHLORIDE [Concomitant]
     Route: 065
  6. PROBUCOL [Concomitant]
     Route: 065
  7. NORVASC [Concomitant]
     Route: 065
  8. FUROSEMIDE [Concomitant]
     Route: 065
  9. UNSPECIFIED MEDICATION [Concomitant]

REACTIONS (2)
  - ESCHERICHIA URINARY TRACT INFECTION [None]
  - RENAL HAEMORRHAGE [None]
